FAERS Safety Report 6525988-4 (Version None)
Quarter: 2010Q1

REPORT INFORMATION
  Report Type: 
  Country: None (occurrence: None)
  Receive Date: 20100104
  Receipt Date: 20091223
  Transmission Date: 20100710
  Serious: Yes (Other)
  Sender: FDA-Public Use
  Company Number: US-BAYER-200916953BCC

PATIENT
  Age: 46 Year
  Sex: Female
  Weight: 92 kg

DRUGS (6)
  1. CAMPHO-PHENIQUE LIQUID [Suspect]
     Indication: ORAL HERPES
     Dosage: CONSUMER USED TWICE  3- 4 DAYS BEFORE THE DATE OF THE EVENT
     Route: 061
     Dates: start: 20091101, end: 20091101
  2. EXFORGE [Concomitant]
     Route: 065
  3. LISINOPRIL AND HYDROCHLOROTHIAZIDE [Concomitant]
     Dosage: LISINOPRIL 20MG / HCTZ 12.5MG
     Route: 065
  4. AMARYL [Concomitant]
     Route: 065
  5. GENERIC IRON [Concomitant]
     Route: 065
  6. METFORMIN [Concomitant]
     Route: 065

REACTIONS (2)
  - BURNING SENSATION [None]
  - SKIN EXFOLIATION [None]
